FAERS Safety Report 17509160 (Version 1)
Quarter: 2020Q1

REPORT INFORMATION
  Report Type: Spontaneous
  Country: NZ (occurrence: NZ)
  Receive Date: 20200306
  Receipt Date: 20200306
  Transmission Date: 20200409
  Serious: Yes (Other)
  Sender: FDA-Public Use
  Company Number: NZ-ROCHE-2561348

PATIENT
  Sex: Female

DRUGS (1)
  1. OCREVUS [Suspect]
     Active Substance: OCRELIZUMAB
     Indication: RELAPSING MULTIPLE SCLEROSIS
     Route: 051
     Dates: start: 20191119, end: 20191119

REACTIONS (2)
  - Maternal exposure before pregnancy [Unknown]
  - Seizure [Unknown]

NARRATIVE: CASE EVENT DATE: 20191119
